FAERS Safety Report 25024511 (Version 1)
Quarter: 2025Q1

REPORT INFORMATION
  Report Type: Spontaneous
  Country: US (occurrence: US)
  Receive Date: 20250228
  Receipt Date: 20250228
  Transmission Date: 20250408
  Serious: Yes (Other)
  Sender: PFIZER
  Company Number: US-PFIZER INC-202500044731

PATIENT
  Age: 1 Year
  Sex: Female

DRUGS (1)
  1. PAXLOVID [Suspect]
     Active Substance: NIRMATRELVIR\RITONAVIR
     Indication: COVID-19 treatment
     Route: 063
     Dates: start: 20250224

REACTIONS (7)
  - Exposure via breast milk [Unknown]
  - Loss of consciousness [Unknown]
  - Feeling abnormal [Unknown]
  - Crying [Unknown]
  - Eye movement disorder [Unknown]
  - Screaming [Unknown]
  - Infant irritability [Unknown]

NARRATIVE: CASE EVENT DATE: 20250224
